FAERS Safety Report 13472781 (Version 1)
Quarter: 2017Q2

REPORT INFORMATION
  Report Type: Spontaneous
  Country: US (occurrence: US)
  Receive Date: 20170424
  Receipt Date: 20170424
  Transmission Date: 20170830
  Serious: Yes (Life-Threatening, Other)
  Sender: FDA-Public Use
  Company Number: US-PFIZER INC-2017170602

PATIENT
  Age: 48 Year
  Sex: Female
  Weight: 65.76 kg

DRUGS (1)
  1. EPIPEN [Suspect]
     Active Substance: EPINEPHRINE
     Indication: ANAPHYLACTIC REACTION
     Dosage: UNK UNK, ONCE
     Route: 030
     Dates: start: 20160421, end: 20160421

REACTIONS (4)
  - Device failure [Recovered/Resolved]
  - Product quality issue [Recovered/Resolved]
  - Device use issue [Recovered/Resolved]
  - Drug dose omission [Recovered/Resolved]

NARRATIVE: CASE EVENT DATE: 20160421
